FAERS Safety Report 6149903-0 (Version None)
Quarter: 2009Q2

REPORT INFORMATION
  Report Type: 
  Country: None (occurrence: None)
  Receive Date: 20090409
  Receipt Date: 20090402
  Transmission Date: 20091009
  Serious: Yes (Other)
  Sender: FDA-Public Use
  Company Number: FR-ASTRAZENECA-2006CG01253

PATIENT
  Age: 56 Year
  Sex: Male

DRUGS (9)
  1. NEXIUM [Suspect]
     Indication: GASTROOESOPHAGEAL REFLUX DISEASE
     Route: 048
     Dates: start: 20050901, end: 20051001
  2. NEXIUM [Suspect]
     Indication: OESOPHAGITIS
     Route: 048
     Dates: start: 20050901, end: 20051001
  3. NEXIUM [Suspect]
     Route: 048
     Dates: start: 20051001, end: 20060418
  4. NEXIUM [Suspect]
     Route: 048
     Dates: start: 20051001, end: 20060418
  5. NEXIUM [Suspect]
     Dosage: 40 MG DAILY + 20 MG AS REQUIRED
     Route: 048
     Dates: start: 20060418, end: 20060717
  6. NEXIUM [Suspect]
     Dosage: 40 MG DAILY + 20 MG AS REQUIRED
     Route: 048
     Dates: start: 20060418, end: 20060717
  7. CARDENSIEL [Concomitant]
     Dates: end: 20060401
  8. DILTIAZEM [Concomitant]
     Dates: start: 20060401, end: 20060701
  9. PLAVIX [Concomitant]
     Dates: end: 20060701

REACTIONS (8)
  - BLADDER SPHINCTER ATONY [None]
  - DYSPNOEA EXERTIONAL [None]
  - HYPERHIDROSIS [None]
  - INSOMNIA [None]
  - IRRITABILITY [None]
  - NECK PAIN [None]
  - PERIPHERAL SENSORIMOTOR NEUROPATHY [None]
  - SKIN EXFOLIATION [None]
